FAERS Safety Report 10733985 (Version 1)
Quarter: 2015Q1

REPORT INFORMATION
  Report Type: Spontaneous
  Country: US (occurrence: US)
  Receive Date: 20150123
  Receipt Date: 20150123
  Transmission Date: 20150721
  Serious: No
  Sender: FDA-Public Use
  Company Number: US-GLAXOSMITHKLINE-US2014GSK046718

PATIENT
  Sex: Female

DRUGS (5)
  1. ALBUTEROL/IPRATROPIUM NEBULIZER [Concomitant]
     Active Substance: ALBUTEROL SULFATE\IPRATROPIUM BROMIDE
  2. FLOVENT DISKUS [Suspect]
     Active Substance: FLUTICASONE PROPIONATE
     Indication: CHRONIC OBSTRUCTIVE PULMONARY DISEASE
     Dosage: 1 PUFF(S), BID
     Route: 055
     Dates: start: 201112, end: 20141027
  3. SLEEPING PILL [Concomitant]
  4. FLOVENT [Suspect]
     Active Substance: FLUTICASONE PROPIONATE
     Indication: CHRONIC OBSTRUCTIVE PULMONARY DISEASE
     Dosage: 2 PUFF(S), TID
     Route: 055
     Dates: start: 20141101
  5. FLOVENT [Suspect]
     Active Substance: FLUTICASONE PROPIONATE
     Dosage: 1 PUFF(S), QD
     Dates: end: 20141104

REACTIONS (5)
  - Respiratory tract irritation [Recovering/Resolving]
  - Dyspnoea [Recovering/Resolving]
  - Pulmonary pain [Recovering/Resolving]
  - Throat irritation [Recovering/Resolving]
  - Dysphonia [Recovering/Resolving]
